FAERS Safety Report 24916368 (Version 1)
Quarter: 2025Q1

REPORT INFORMATION
  Report Type: Spontaneous
  Country: US (occurrence: None)
  Receive Date: 20250131
  Receipt Date: 20250131
  Transmission Date: 20250409
  Serious: Yes (unspecified)
  Sender: FDA-CTU
  Company Number: None

PATIENT
  Age: 74 Year
  Sex: Male
  Weight: 124 kg

DRUGS (1)
  1. METOCLOPRAMIDE HYDROCHLORIDE [Suspect]
     Active Substance: METOCLOPRAMIDE HYDROCHLORIDE
     Indication: Postoperative care

REACTIONS (9)
  - Akathisia [None]
  - Paraesthesia [None]
  - Tardive dyskinesia [None]
  - Adverse drug reaction [None]
  - Dystonia [None]
  - Injury [None]
  - Anxiety [None]
  - Tremor [None]
  - Post procedural complication [None]

NARRATIVE: CASE EVENT DATE: 20230524
